FAERS Safety Report 10263727 (Version 1)
Quarter: 2014Q2

REPORT INFORMATION
  Report Type: Spontaneous
  Country: US (occurrence: US)
  Receive Date: 20140627
  Receipt Date: 20140627
  Transmission Date: 20141212
  Serious: No
  Sender: FDA-Public Use
  Company Number: US-GILEAD-2014-0106812

PATIENT
  Age: 38 Year
  Sex: Female

DRUGS (9)
  1. LETAIRIS [Suspect]
     Indication: PULMONARY HYPERTENSION
     Dosage: 10 MG, QD
     Route: 065
     Dates: start: 20140606
  2. XANAX [Concomitant]
  3. WARFARIN [Concomitant]
  4. IRON [Concomitant]
  5. VITAMIN D NOS [Concomitant]
  6. HYDROCHLOROTHIAZIDE [Concomitant]
  7. MAGNESIUM [Concomitant]
  8. HYDROCODONE [Concomitant]
  9. ADCIRCA [Concomitant]

REACTIONS (1)
  - Headache [Not Recovered/Not Resolved]
